FAERS Safety Report 19443943 (Version 1)
Quarter: 2021Q2

REPORT INFORMATION
  Report Type: Report from Study
  Country: US (occurrence: US)
  Receive Date: 20210621
  Receipt Date: 20210621
  Transmission Date: 20210717
  Serious: Yes (Hospitalization)
  Sender: FDA-Public Use
  Company Number: US-BIOGEN-2021BI01020008

PATIENT
  Age: 73 Year
  Sex: Female

DRUGS (2)
  1. TECFIDERA [Suspect]
     Active Substance: DIMETHYL FUMARATE
     Indication: MULTIPLE SCLEROSIS
     Dosage: AS DIRECTED, FOR 1 WEEK
     Route: 048
     Dates: start: 202104
  2. TECFIDERA [Suspect]
     Active Substance: DIMETHYL FUMARATE
     Dosage: AS DIRECTED
     Route: 048

REACTIONS (3)
  - Dislocation of vertebra [Unknown]
  - Pain [Unknown]
  - Underdose [Unknown]

NARRATIVE: CASE EVENT DATE: 202104
